FAERS Safety Report 8174350 (Version 5)
Quarter: 2013Q1

REPORT INFORMATION
  Report Type: Report from Study
  Country: DE (occurrence: DE)
  Receive Date: 20111010
  Receipt Date: 20130129
  Transmission Date: 20140127
  Serious: Yes (Hospitalization)
  Sender: FDA-Public Use
  Company Number: DE-VIIV HEALTHCARE LIMITED-B0753499A

PATIENT
  Age: 48 Year
  Sex: Male
  Weight: 97 kg

DRUGS (4)
  1. MARAVIROC [Suspect]
     Indication: HIV INFECTION
     Dosage: 300MG TWICE PER DAY
     Route: 048
     Dates: start: 20091210
  2. TRUVADA [Concomitant]
     Indication: HIV INFECTION
     Dosage: 1TAB PER DAY
     Dates: start: 20081218
  3. COTRIM FORTE [Concomitant]
     Indication: PNEUMOCYSTIS JIROVECII PNEUMONIA
     Route: 048
     Dates: start: 201105
  4. PANTOZOL [Concomitant]
     Indication: PROPHYLAXIS
     Route: 048
     Dates: start: 201105

REACTIONS (1)
  - Hodgkin^s disease [Recovered/Resolved]
